FAERS Safety Report 22646312 (Version 1)
Quarter: 2023Q2

REPORT INFORMATION
  Report Type: Spontaneous
  Country: US (occurrence: None)
  Receive Date: 20230626
  Receipt Date: 20230626
  Transmission Date: 20230721
  Serious: No
  Sender: FDA-Public Use
  Company Number: None

PATIENT

DRUGS (2)
  1. LATANOPROST [Suspect]
     Active Substance: LATANOPROST
  2. VYZULTA [Suspect]
     Active Substance: LATANOPROSTENE BUNOD

REACTIONS (3)
  - Product dispensing error [None]
  - Wrong product administered [None]
  - Transcription medication error [None]
